FAERS Safety Report 25509620 (Version 1)
Quarter: 2025Q3

REPORT INFORMATION
  Report Type: Spontaneous
  Country: US (occurrence: None)
  Receive Date: 20250702
  Receipt Date: 20250702
  Transmission Date: 20251021
  Serious: Yes (Other)
  Sender: FDA-CTU
  Company Number: None

PATIENT
  Age: 68 Year
  Sex: Female
  Weight: 51.75 kg

DRUGS (20)
  1. CIPROFLOXACIN [Suspect]
     Active Substance: CIPROFLOXACIN
     Indication: Cystitis
     Dates: start: 20160401, end: 20160406
  2. MAGNESIUM [Concomitant]
     Active Substance: MAGNESIUM
  3. CALCIUM [Concomitant]
     Active Substance: CALCIUM
  4. food based 1 a day [Concomitant]
  5. VITAMIN C [Concomitant]
     Active Substance: ASCORBIC ACID
  6. IPRIFLAVONE [Concomitant]
     Active Substance: IPRIFLAVONE
  7. mk7 [Concomitant]
  8. VITAMIN D NOS [Concomitant]
     Active Substance: CHOLECALCIFEROL\ERGOCALCIFEROL
  9. VITAMIN E [Concomitant]
     Active Substance: .ALPHA.-TOCOPHEROL
  10. OMEGA 3 [Concomitant]
     Active Substance: CAPSAICIN
  11. MELATONIN [Concomitant]
     Active Substance: MELATONIN
  12. PRASTERONE [Concomitant]
     Active Substance: PRASTERONE
  13. L theanine [Concomitant]
  14. HERBALS\WITHANIA SOMNIFERA ROOT [Concomitant]
     Active Substance: HERBALS\WITHANIA SOMNIFERA ROOT
  15. HERBALS [Concomitant]
     Active Substance: HERBALS
  16. PSP [Concomitant]
  17. ALPHA LIPOIC ACID [Concomitant]
     Active Substance: .ALPHA.-LIPOIC ACID
  18. HERBALS\TURMERIC [Concomitant]
     Active Substance: HERBALS\TURMERIC
  19. COLLAGEN [Concomitant]
     Active Substance: COLLAGEN
  20. protein powder [Concomitant]

REACTIONS (13)
  - Muscle spasms [None]
  - Suicidal ideation [None]
  - Anxiety [None]
  - Panic attack [None]
  - Depression [None]
  - Arthralgia [None]
  - Arthralgia [None]
  - Arthralgia [None]
  - Arthralgia [None]
  - Arthralgia [None]
  - Gait disturbance [None]
  - Neuroma [None]
  - Impaired quality of life [None]

NARRATIVE: CASE EVENT DATE: 20160401
